FAERS Safety Report 5279378-5 (Version None)
Quarter: 2007Q1

REPORT INFORMATION
  Report Type: 
  Country: None (occurrence: None)
  Receive Date: 20070328
  Receipt Date: 20070321
  Transmission Date: 20070707
  Serious: No
  Sender: FDA-Public Use
  Company Number: DK-BAXTER-2007BH003057

PATIENT
  Age: 79 Year
  Sex: Male
  Weight: 80 kg

DRUGS (6)
  1. PROTHROMPLEX TOTAL S-TIM4 [Suspect]
     Indication: ABNORMAL CLOTTING FACTOR
     Route: 042
     Dates: start: 20070115, end: 20070115
  2. PROTHROMPLEX TOTAL S-TIM4 [Suspect]
     Indication: CEREBRAL HAEMORRHAGE
     Route: 042
     Dates: start: 20070115, end: 20070115
  3. PAMOL [Concomitant]
     Dates: start: 20070115
  4. KONAKION [Concomitant]
     Dates: start: 20070115, end: 20070115
  5. OXAZEPAM [Concomitant]
     Dates: start: 20070115
  6. DIAZEPAM [Concomitant]
     Dates: start: 20070115

REACTIONS (1)
  - VENTRICULAR TACHYCARDIA [None]
